FAERS Safety Report 5355324-0 (Version None)
Quarter: 2007Q2

REPORT INFORMATION
  Report Type: 
  Country: None (occurrence: None)
  Receive Date: 20070613
  Receipt Date: 20070606
  Transmission Date: 20071010
  Serious: Yes (Life-Threatening)
  Sender: FDA-Public Use
  Company Number: DE-BAYER-200710655BVD

PATIENT
  Age: 75 Year
  Sex: Male
  Weight: 85 kg

DRUGS (27)
  1. CIPROFLOXACIN HCL [Suspect]
     Indication: UNEVALUABLE EVENT
     Dosage: AS USED: 400 MG
     Route: 042
     Dates: start: 20070309, end: 20070316
  2. CIPROFLOXACIN HCL [Suspect]
     Dosage: AS USED: 400 MG
     Route: 042
     Dates: start: 20070321, end: 20070322
  3. ASPIRIN [Concomitant]
     Route: 048
     Dates: start: 20070306, end: 20070321
  4. DIGIMERCK MINOR [Concomitant]
     Route: 042
     Dates: start: 20070306, end: 20070311
  5. DIGIMERCK MINOR [Concomitant]
     Route: 048
     Dates: start: 20070312, end: 20070322
  6. ALDACTONE [Concomitant]
     Route: 042
     Dates: start: 20070306, end: 20070316
  7. METOPROLOL SUCCINATE [Concomitant]
     Dosage: AS USED: 95 MG
     Route: 048
     Dates: start: 20070306, end: 20070318
  8. METOPROLOL SUCCINATE [Concomitant]
     Dosage: AS USED: 95 MG
     Route: 048
     Dates: start: 20070319, end: 20070320
  9. CIPRALEX [Concomitant]
     Route: 048
     Dates: start: 20070306, end: 20070306
  10. HALOPERIDOL [Concomitant]
     Dosage: AS USED: 5 MG
     Route: 042
     Dates: start: 20070316, end: 20070316
  11. HALOPERIDOL [Concomitant]
     Dosage: AS USED: 5 MG
     Route: 042
     Dates: start: 20070307, end: 20070315
  12. HALOPERIDOL [Concomitant]
     Dosage: AS USED: 5 MG
     Route: 042
     Dates: start: 20070306, end: 20070306
  13. CEFTAZIDIME [Concomitant]
     Dosage: AS USED: 2 G
     Route: 042
     Dates: start: 20070309, end: 20070316
  14. CEFTAZIDIME [Concomitant]
     Dosage: AS USED: 2 G
     Route: 042
     Dates: start: 20070308, end: 20070308
  15. DIFLUCAN [Concomitant]
     Dosage: AS USED: 200 MG
     Route: 042
     Dates: start: 20070309, end: 20070316
  16. DIFLUCAN [Concomitant]
     Dosage: AS USED: 200 MG
     Route: 042
     Dates: start: 20070321, end: 20070321
  17. DIFLUCAN [Concomitant]
     Route: 042
     Dates: start: 20070308, end: 20070308
  18. METOCLOPRAMIDE [Concomitant]
     Dosage: AS USED: 10 MG
     Route: 042
     Dates: start: 20070305, end: 20070305
  19. METOCLOPRAMIDE [Concomitant]
     Dosage: AS USED: 10 MG
     Route: 042
     Dates: start: 20070311, end: 20070321
  20. PANTOZOL [Concomitant]
     Route: 042
     Dates: start: 20070305, end: 20070305
  21. PANTOZOL [Concomitant]
     Dosage: AS USED: 40 MG
     Route: 042
     Dates: start: 20070306, end: 20070321
  22. MIRTAZAPINE [Concomitant]
     Route: 048
     Dates: start: 20070306, end: 20070310
  23. MIRTAZAPINE [Concomitant]
     Dosage: AS USED: 30 MG
     Route: 048
     Dates: start: 20070311, end: 20070320
  24. ZOLPIDEM [Concomitant]
     Route: 048
     Dates: start: 20070306, end: 20070315
  25. RAMIPRIL [Concomitant]
     Dosage: UNIT DOSE: 2.5 MG
     Route: 048
     Dates: start: 20070318, end: 20070318
  26. RAMIPRIL [Concomitant]
     Dosage: UNIT DOSE: 2.5 MG
     Route: 048
  27. RAMIPRIL [Concomitant]
     Dosage: UNIT DOSE: 2.5 MG
     Route: 048
     Dates: start: 20070317, end: 20070317

REACTIONS (1)
  - AGRANULOCYTOSIS [None]
